FAERS Safety Report 8435714 (Version 2)
Quarter: 2012Q4

REPORT INFORMATION
  Report Type: 
  Country: US (occurrence: US)
  Receive Date: 20120301
  Receipt Date: 20120925
  Transmission Date: 20130627
  Serious: Yes (Hospitalization)
  Sender: FDA-Public Use
  Company Number: US-ACTELION-A-US2012-61698

PATIENT
  Age: 52 Year
  Sex: Female

DRUGS (3)
  1. VELETRI [Suspect]
     Indication: PULMONARY ARTERIAL HYPERTENSION
     Dosage: 30 ng/kg, per min
     Route: 042
     Dates: start: 20100427
  2. SILDENAFIL [Concomitant]
  3. COUMADIN [Concomitant]

REACTIONS (2)
  - Post procedural haemorrhage [Recovered/Resolved]
  - Paracentesis [Recovered/Resolved]
